FAERS Safety Report 6662980-3 (Version None)
Quarter: 2010Q1

REPORT INFORMATION
  Report Type: 
  Country: None (occurrence: None)
  Receive Date: 20100322
  Receipt Date: 20100309
  Transmission Date: 20100710
  Serious: No
  Sender: FDA-Public Use
  Company Number: 2010-00322

PATIENT
  Sex: Female

DRUGS (2)
  1. ZICAM COLD REMEDY ORAL MIST [Suspect]
  2. ZICAM ORAL PRODUCTS [Suspect]

REACTIONS (3)
  - ABDOMINAL DISCOMFORT [None]
  - AGEUSIA [None]
  - ANOSMIA [None]
